FAERS Safety Report 4533177-8 (Version None)
Quarter: 2005Q1

REPORT INFORMATION
  Report Type: 
  Country: None (occurrence: None)
  Receive Date: 20041206
  Receipt Date: 20041022
  Transmission Date: 20050727
  Serious: No
  Sender: FDA-Public Use
  Company Number: USA041082104

PATIENT
  Age: 50 Year
  Sex: Male
  Weight: 89 kg

DRUGS (3)
  1. CYMBALTA [Suspect]
     Indication: DEPRESSION
     Dosage: 120 MG DAY
     Dates: start: 20040908
  2. KLONOPIN [Concomitant]
  3. ADDERALL 10 [Concomitant]

REACTIONS (5)
  - APATHY [None]
  - DRUG INEFFECTIVE [None]
  - FATIGUE [None]
  - FEELING ABNORMAL [None]
  - PRESCRIBED OVERDOSE [None]
